FAERS Safety Report 10952128 (Version 1)
Quarter: 2015Q1

REPORT INFORMATION
  Report Type: Spontaneous
  Country: US (occurrence: None)
  Receive Date: 20150324
  Receipt Date: 20150324
  Transmission Date: 20150721
  Serious: Yes (Hospitalization)
  Sender: FDA-Public Use
  Company Number: None

PATIENT

DRUGS (8)
  1. VIIBRYD [Suspect]
     Active Substance: VILAZODONE HYDROCHLORIDE
     Indication: BIPOLAR DISORDER
     Dosage: VIIBRYD (20 MG) TAKEN DAILY TAB, 1 PILL OF 20 MG, TAKEN BY MOUTH
     Route: 048
  2. STOOL SOFTENER [Concomitant]
     Active Substance: DOCUSATE CALCIUM
  3. ALPRAZOLAM. [Suspect]
     Active Substance: ALPRAZOLAM
     Indication: ANXIETY
     Dosage: ALPRAZOLAFIL (1 MG) TAKEN AT NIGHT TIME UP TO 3 MG^S DUE TO ANXIETY.  3X^S A DAY, 3X^S A DAY AS NEEDED, TAKEN BY MOUTH, TAKEN AT NIGHT TIME UP TO 3MG^S DUE TO ANXIETY.
     Route: 048
     Dates: start: 20130920, end: 20131213
  4. LITHIUM CARB [Suspect]
     Active Substance: LITHIUM CARBONATE
     Indication: TACHYPHRENIA
     Dosage: LITHICUM CARB (600 MG) TAKEN DAILY AT NIGHT, TAKEN BY MOUTH
     Route: 048
  5. ZOLPIDEM [Suspect]
     Active Substance: ZOLPIDEM\ZOLPIDEM TARTRATE
     Indication: SLEEP DISORDER
     Dosage: 10MG REDUCED, NO MORE THAN 2 PILLS, TAKEN BY MOUTH?
     Route: 048
  6. LEVOTHYROXIN (25 MCG) [Concomitant]
  7. VITAMIN D3 [Concomitant]
     Active Substance: CHOLECALCIFEROL
  8. ALLERGY RELIEF NOS [Concomitant]
     Active Substance: ACETAMINOPHEN\CHLORPHENIRAMINE MALEATE\PHENYLEPHRINE HYDROCHLORIDE OR CETIRIZINE HYDROCHLORIDE OR CHLORPHENIRAMINE MALEATE OR CLEMASTINE FUMARATE OR DIPHENHYDRAMINE HYDROCHLORIDE OR FEXOFENADINE HYDROCHLORIDE OR LORATADINE

REACTIONS (12)
  - Amnesia [None]
  - Acute respiratory failure [None]
  - Craniocerebral injury [None]
  - Laceration [None]
  - Somnambulism [None]
  - Abnormal sleep-related event [None]
  - Subarachnoid haemorrhage [None]
  - Initial insomnia [None]
  - Abnormal behaviour [None]
  - Rib fracture [None]
  - Road traffic accident [None]
  - Contusion [None]

NARRATIVE: CASE EVENT DATE: 20131212
